FAERS Safety Report 22611313 (Version 1)
Quarter: 2023Q2

REPORT INFORMATION
  Report Type: Spontaneous
  Country: FR (occurrence: FR)
  Receive Date: 20230616
  Receipt Date: 20230616
  Transmission Date: 20230721
  Serious: Yes (Hospitalization)
  Sender: FDA-Public Use
  Company Number: FR-PURDUE-USA-2023-0302854

PATIENT
  Age: 58 Year
  Sex: Male
  Weight: 84.2 kg

DRUGS (1)
  1. MORPHINE SULFATE [Suspect]
     Active Substance: MORPHINE SULFATE
     Indication: Back pain
     Dosage: 10 MG/DAY INITIALLY, THEN INCREASED TO 40 MG/DAY A FEW DAYS BEFORE ONSET OF SOMNOLENCE
     Route: 065
     Dates: start: 202203, end: 202203

REACTIONS (3)
  - Somnolence [Recovered/Resolved]
  - Acute kidney injury [Recovered/Resolved]
  - Acute pulmonary oedema [Recovered/Resolved]

NARRATIVE: CASE EVENT DATE: 20220319
